FAERS Safety Report 8322520-X (Version None)
Quarter: 2012Q2

REPORT INFORMATION
  Report Type: 
  Country: None (occurrence: None)
  Receive Date: 20120430
  Receipt Date: 20120424
  Transmission Date: 20120825
  Serious: Yes (Hospitalization)
  Sender: FDA-Public Use
  Company Number: JP-EISAI INC-E2090-02083-SPO-JP

PATIENT
  Age: 37 Year
  Sex: Female

DRUGS (18)
  1. LEVOTHYROXINE SODIUM [Concomitant]
  2. VALERIN [Concomitant]
  3. PARLODEL [Concomitant]
  4. ALOSENN [Concomitant]
  5. ZONISAMIDE [Suspect]
     Route: 048
     Dates: start: 20120308, end: 20120315
  6. ZONISAMIDE [Suspect]
     Dosage: 400 MG DAILY
     Route: 048
     Dates: start: 20120322, end: 20120324
  7. ACETAMINOPHEN [Suspect]
     Indication: PYREXIA
     Dosage: 1200 MG DAILY
     Route: 048
     Dates: start: 20120320, end: 20120323
  8. FLUPHENAZINE [Concomitant]
  9. DIAZEPAM [Concomitant]
  10. SHINLUCK [Concomitant]
  11. SODIUM VALPROATE SR [Concomitant]
     Dosage: DOSE DECREASED
  12. HALOPERIDOL [Concomitant]
  13. CEFAMEZIN ALPHA [Concomitant]
  14. PROMAZINE HYDROCHLORIDE [Concomitant]
  15. ZONISAMIDE [Suspect]
     Dosage: 300 MG DAILY (100 MG AND  200 MG DAILY)
     Route: 048
     Dates: start: 20120316, end: 20120321
  16. SLOWHEIM [Suspect]
     Route: 048
     Dates: start: 20120301, end: 20120324
  17. AKINETON [Concomitant]
  18. NITRAZEPAM [Concomitant]

REACTIONS (1)
  - STEVENS-JOHNSON SYNDROME [None]
